FAERS Safety Report 6869765-3 (Version None)
Quarter: 2010Q3

REPORT INFORMATION
  Report Type: 
  Country: None (occurrence: None)
  Receive Date: 20100722
  Receipt Date: 20080825
  Transmission Date: 20110219
  Serious: Yes (Other)
  Sender: FDA-Public Use
  Company Number: US-PFIZER INC-2008071332

PATIENT
  Sex: Female
  Weight: 54.4 kg

DRUGS (2)
  1. CHANTIX [Suspect]
     Indication: SMOKING CESSATION THERAPY
     Dates: start: 20080811
  2. ATARAX [Concomitant]

REACTIONS (6)
  - ANGER [None]
  - DEPRESSED MOOD [None]
  - DEPRESSION [None]
  - MEDICATION ERROR [None]
  - STRESS [None]
  - SUICIDAL IDEATION [None]
